FAERS Safety Report 11138984 (Version 1)
Quarter: 2015Q2

REPORT INFORMATION
  Report Type: Spontaneous
  Country: US (occurrence: None)
  Receive Date: 20150526
  Receipt Date: 20150526
  Transmission Date: 20150821
  Serious: Yes (Other)
  Sender: FDA-Public Use
  Company Number: None

PATIENT
  Age: 52 Year
  Sex: Male

DRUGS (1)
  1. MYCOPHENOLATE 250MG [Suspect]
     Active Substance: MYCOPHENOLIC ACID

REACTIONS (1)
  - Abdominal discomfort [None]

NARRATIVE: CASE EVENT DATE: 20150522
